FAERS Safety Report 5946894-X (Version None)
Quarter: 2008Q4

REPORT INFORMATION
  Report Type: 
  Country: None (occurrence: None)
  Receive Date: 20081107
  Receipt Date: 20081107
  Transmission Date: 20090506
  Serious: Yes (Life-Threatening, Other)
  Sender: FDA-Public Use
  Company Number: None

PATIENT
  Age: 70 Year
  Sex: Female
  Weight: 70 kg

DRUGS (2)
  1. LOVENOX [Suspect]
     Indication: ANTICOAGULANT THERAPY
     Dosage: 69 MG EVERY 12 HOURS SQ
     Route: 058
     Dates: start: 20080911, end: 20080911
  2. WARFARIN SODIUM [Suspect]
     Indication: ANTICOAGULANT THERAPY
     Dosage: 2.5 MG ONCE DAILY PO
     Route: 048
     Dates: start: 20080911, end: 20080911

REACTIONS (3)
  - CEREBRAL HAEMATOMA [None]
  - HAEMORRHAGE [None]
  - HEADACHE [None]
